FAERS Safety Report 16688414 (Version 1)
Quarter: 2019Q3

REPORT INFORMATION
  Report Type: Spontaneous
  Country: US (occurrence: US)
  Receive Date: 20190809
  Receipt Date: 20190809
  Transmission Date: 20191004
  Serious: Yes (Life-Threatening, Hospitalization)
  Sender: FDA-Public Use
  Company Number: US-ASTRAZENECA-2019SF13590

PATIENT
  Sex: Male
  Weight: 83.9 kg

DRUGS (3)
  1. TROCHE [Concomitant]
     Indication: CANDIDA INFECTION
  2. NUCALA [Concomitant]
     Active Substance: MEPOLIZUMAB
  3. SYMBICORT [Suspect]
     Active Substance: BUDESONIDE\FORMOTEROL FUMARATE DIHYDRATE
     Indication: CHRONIC OBSTRUCTIVE PULMONARY DISEASE
     Dosage: 160/4.5 MCG, 2 PUFFS TWICE A DAY
     Route: 055
     Dates: end: 2017

REACTIONS (2)
  - Candida infection [Recovered/Resolved]
  - Respiratory failure [Recovered/Resolved]

NARRATIVE: CASE EVENT DATE: 201712
